FAERS Safety Report 16791196 (Version 1)
Quarter: 2019Q3

REPORT INFORMATION
  Report Type: Spontaneous
  Country: US (occurrence: US)
  Receive Date: 20190910
  Receipt Date: 20190910
  Transmission Date: 20191005
  Serious: No
  Sender: FDA-Public Use
  Company Number: US-PERRIGO-19US000093

PATIENT
  Age: 53 Year
  Sex: Female
  Weight: 88.44 kg

DRUGS (4)
  1. EVAMIST [Suspect]
     Active Substance: ESTRADIOL
     Indication: HOT FLUSH
     Dosage: 1.53 MG, QD AT NIGHT
     Route: 062
     Dates: start: 20181219, end: 20181231
  2. EVAMIST [Suspect]
     Active Substance: ESTRADIOL
     Dosage: 1 1/4 SPRAY, QD AT NIGHT
     Route: 062
     Dates: start: 20190101, end: 20190102
  3. EVAMIST [Suspect]
     Active Substance: ESTRADIOL
     Dosage: 1 1/4 SPRAY, QD AT NIGHT
     Route: 062
     Dates: start: 201901, end: 20190112
  4. EVAMIST [Suspect]
     Active Substance: ESTRADIOL
     Dosage: 4.59 MCG, UNK
     Route: 062
     Dates: start: 20190113

REACTIONS (2)
  - Underdose [Recovered/Resolved]
  - Incorrect dose administered [Not Recovered/Not Resolved]

NARRATIVE: CASE EVENT DATE: 20190101
